FAERS Safety Report 4773909-7 (Version None)
Quarter: 2005Q3

REPORT INFORMATION
  Report Type: 
  Country: None (occurrence: None)
  Receive Date: 20050920
  Receipt Date: 20050915
  Transmission Date: 20060218
  Serious: Yes (Life-Threatening, Hospitalization)
  Sender: FDA-Public Use
  Company Number: PHBS2005US13625

PATIENT
  Age: 58 Year
  Sex: Female

DRUGS (23)
  1. SERTRALINE HCL [Concomitant]
     Indication: DEPRESSION
     Dosage: 25 MG/DAY
  2. TACROLIMUS [Concomitant]
  3. CYCLOPHOSPHAMIDE [Concomitant]
  4. PREDNISONE [Concomitant]
     Dosage: 40 MG, BID
  5. DOPAMINE [Concomitant]
     Dosage: 2.5 UG/KG/MINUTE
  6. VALGANCICLOVIR [Concomitant]
  7. EPOGEN [Concomitant]
  8. PRAVASTATIN [Concomitant]
  9. ASPIRIN [Concomitant]
  10. CALCIUM CITRATE [Concomitant]
  11. PANTOPRAZOLE [Concomitant]
  12. DOCUSATE SODIUM [Concomitant]
  13. AMPHOTERICIN B [Concomitant]
  14. SULFAMETHOXAZOLE + TRIMETHOPRIM [Concomitant]
  15. FUROSEMIDE [Concomitant]
  16. LEVOFLOXACIN [Concomitant]
  17. ISOPHANE INSULIN [Concomitant]
  18. VANCOMYCIN [Concomitant]
  19. NYSTATIN [Concomitant]
  20. HEPARIN [Concomitant]
     Route: 058
  21. FERROUS GLUCONATE [Concomitant]
  22. MULTI-VITAMIN [Concomitant]
  23. METHYLPHENIDATE HCL [Suspect]
     Indication: DEPRESSION
     Dosage: 5 MG/DAY

REACTIONS (6)
  - ARRHYTHMIA [None]
  - ATRIOVENTRICULAR BLOCK SECOND DEGREE [None]
  - CARDIAC ARREST [None]
  - HYPOTENSION [None]
  - RESUSCITATION [None]
  - SUPRAVENTRICULAR TACHYCARDIA [None]
